FAERS Safety Report 25877564 (Version 1)
Quarter: 2025Q4

REPORT INFORMATION
  Report Type: Spontaneous
  Country: US (occurrence: None)
  Receive Date: 20251002
  Receipt Date: 20251002
  Transmission Date: 20260117
  Serious: Yes (Hospitalization)
  Sender: FDA-CTU
  Company Number: None

PATIENT
  Sex: Female

DRUGS (2)
  1. HYRIMOZ [Suspect]
     Active Substance: ADALIMUMAB-ADAZ
     Indication: Hidradenitis
     Dosage: OTHER FREQUENCY : ON DAY 1 AND DAY 2 AND 80MG (TWO 40MG PENS) ON DAY 15 THEN START MAINTENANCE DOSING AS DIRECTED ON D;?
     Route: 058
     Dates: start: 20250927
  2. COSENTYX [Suspect]
     Active Substance: SECUKINUMAB

REACTIONS (7)
  - Hidradenitis [None]
  - Condition aggravated [None]
  - Behcet^s syndrome [None]
  - Inflammation [None]
  - Rash [None]
  - Drug ineffective [None]
  - Erythema multiforme [None]
